FAERS Safety Report 8102647 (Version 4)
Quarter: 2013Q1

REPORT INFORMATION
  Report Type: Spontaneous
  Country: NL (occurrence: NL)
  Receive Date: 20110823
  Receipt Date: 20130301
  Transmission Date: 20140127
  Serious: Yes (Hospitalization)
  Sender: FDA-Public Use
  Company Number: NL-GLAXOSMITHKLINE-B0741568A

PATIENT
  Age: 19 Year
  Sex: Female
  Weight: 62 kg

DRUGS (2)
  1. REVOLADE [Suspect]
     Indication: THROMBOCYTOPENIA
     Dosage: 50MG PER DAY
     Route: 065
     Dates: start: 20110720, end: 20110728
  2. ORAL CONTRACEPTIVE [Concomitant]

REACTIONS (14)
  - Renal failure [Recovered/Resolved]
  - Antiphospholipid syndrome [Not Recovered/Not Resolved]
  - Vomiting [Recovered/Resolved]
  - Nausea [Recovered/Resolved]
  - Malaise [Recovered/Resolved]
  - Paraesthesia [Recovered/Resolved]
  - Night sweats [Recovered/Resolved]
  - Angiopathy [Recovered/Resolved]
  - Haematuria [Recovered/Resolved]
  - Headache [Recovered/Resolved]
  - Cystitis [Unknown]
  - Renal embolism [Unknown]
  - Nervous system disorder [Unknown]
  - Idiopathic thrombocytopenic purpura [Unknown]
